FAERS Safety Report 5382320-X (Version None)
Quarter: 2007Q3

REPORT INFORMATION
  Report Type: 
  Country: None (occurrence: None)
  Receive Date: 20070709
  Receipt Date: 20070702
  Transmission Date: 20080115
  Serious: Yes (Hospitalization)
  Sender: FDA-Public Use
  Company Number: TR-BOEHRINGER INGELHEIM PHARMACEUTICALS, INC.-2007-DE-03909TK

PATIENT
  Age: 62 Year
  Sex: Female

DRUGS (5)
  1. TIOTROPIUM [Suspect]
     Indication: CHRONIC OBSTRUCTIVE PULMONARY DISEASE
     Route: 055
     Dates: start: 20050501, end: 20050505
  2. SYMBICORT FORT [Concomitant]
     Route: 055
  3. LANSOR [Concomitant]
     Route: 048
  4. TENSINOR [Concomitant]
     Route: 048
  5. INDAPAMIDE [Concomitant]
     Route: 048

REACTIONS (1)
  - ANGLE CLOSURE GLAUCOMA [None]
